FAERS Safety Report 20967379 (Version 2)
Quarter: 2023Q4

REPORT INFORMATION
  Report Type: Spontaneous
  Country: US (occurrence: US)
  Receive Date: 20220616
  Receipt Date: 20231020
  Transmission Date: 20240110
  Serious: No
  Sender: FDA-Public Use
  Company Number: US-PFIZER INC-2021845733

PATIENT
  Age: 86 Year
  Sex: Female
  Weight: 72.562 kg

DRUGS (3)
  1. IBRANCE [Suspect]
     Active Substance: PALBOCICLIB
     Indication: Breast cancer metastatic
     Dosage: 125 MG, CYCLIC (ONCE DAILY, ON DAYS 1-21 OF A 28-DAY CYCLE)
     Route: 048
     Dates: end: 202204
  2. IBRANCE [Suspect]
     Active Substance: PALBOCICLIB
     Dosage: 125 MG, CYCLIC (ONCE DAILY, ON DAYS 1-21 OF A 28-DAY CYCLE)
     Route: 048
     Dates: start: 20220523
  3. GLIPIZIDE [Concomitant]
     Active Substance: GLIPIZIDE
     Dosage: UNK

REACTIONS (5)
  - Headache [Unknown]
  - Full blood count decreased [Recovered/Resolved]
  - Pain of skin [Unknown]
  - Memory impairment [Unknown]
  - Neck pain [Unknown]

NARRATIVE: CASE EVENT DATE: 20220101
